FAERS Safety Report 9997932 (Version 3)
Quarter: 2014Q2

REPORT INFORMATION
  Report Type: Spontaneous
  Country: US (occurrence: US)
  Receive Date: 20140311
  Receipt Date: 20140603
  Transmission Date: 20141212
  Serious: Yes (Hospitalization)
  Sender: FDA-Public Use
  Company Number: US-FRI-1000060369

PATIENT
  Age: 36 Year
  Sex: Male
  Weight: 90.7 kg

DRUGS (7)
  1. FETZIMA [Suspect]
     Indication: BIPOLAR DISORDER
     Dosage: 20 MG
     Route: 048
     Dates: start: 20140117, end: 20140118
  2. FETZIMA [Suspect]
     Indication: DEPRESSION
     Dosage: 40 MG
     Route: 048
     Dates: start: 20140119, end: 20140213
  3. FETZIMA [Suspect]
     Indication: SOCIAL AVOIDANT BEHAVIOUR
  4. FETZIMA [Suspect]
     Indication: BIPOLAR DISORDER
     Dosage: 60 MG
     Route: 048
     Dates: start: 20140214, end: 20140223
  5. FETZIMA [Suspect]
     Indication: DEPRESSION
  6. FETZIMA [Suspect]
     Indication: SOCIAL AVOIDANT BEHAVIOUR
  7. ATIVAN [Concomitant]
     Dosage: 2 MG

REACTIONS (2)
  - Pericarditis [Recovered/Resolved]
  - Off label use [Recovered/Resolved]
